FAERS Safety Report 13099050 (Version 2)
Quarter: 2017Q1

REPORT INFORMATION
  Report Type: Report from Study
  Country: None (occurrence: CA)
  Receive Date: 20170109
  Receipt Date: 20170110
  Transmission Date: 20170428
  Serious: Yes (Hospitalization)
  Sender: FDA-Public Use
  Company Number: CA-ABBVIE-16K-028-1753038-00

PATIENT
  Age: 38 Year
  Sex: Female

DRUGS (1)
  1. HUMIRA [Suspect]
     Active Substance: ADALIMUMAB
     Indication: CROHN^S DISEASE
     Route: 058
     Dates: start: 20160920, end: 201609

REACTIONS (2)
  - Acne [Unknown]
  - Lower respiratory tract infection [Not Recovered/Not Resolved]

NARRATIVE: CASE EVENT DATE: 2016
